FAERS Safety Report 19436111 (Version 1)
Quarter: 2021Q2

REPORT INFORMATION
  Report Type: Report from Study
  Country: FR (occurrence: FR)
  Receive Date: 20210618
  Receipt Date: 20210618
  Transmission Date: 20210717
  Serious: Yes (Hospitalization, Other)
  Sender: FDA-Public Use
  Company Number: FR-AXELLIA-003829

PATIENT
  Age: 79 Year
  Sex: Male

DRUGS (3)
  1. DAPTOMYCIN. [Suspect]
     Active Substance: DAPTOMYCIN
     Indication: STAPHYLOCOCCAL INFECTION
     Route: 042
  2. LYSINE [Concomitant]
     Active Substance: LYSINE
     Indication: STAPHYLOCOCCAL INFECTION
     Dates: start: 20181108
  3. LINEZOLID. [Concomitant]
     Active Substance: LINEZOLID
     Indication: STAPHYLOCOCCAL INFECTION
     Dosage: 600 MG BID 4?6 WEEKS
     Route: 048

REACTIONS (1)
  - Eosinophilic pneumonia [Unknown]
